FAERS Safety Report 4354328-4 (Version None)
Quarter: 2004Q2

REPORT INFORMATION
  Report Type: 
  Country: None (occurrence: None)
  Receive Date: 20040503
  Receipt Date: 20040419
  Transmission Date: 20050107
  Serious: Yes (Other)
  Sender: FDA-Public Use
  Company Number: 2004026722

PATIENT
  Age: 60 Year
  Sex: Female
  Weight: 56.6996 kg

DRUGS (7)
  1. NEURONTIN [Suspect]
     Indication: PAIN
     Dosage: 2400 (TID), ORAL
     Route: 048
  2. LEVOTHYROXIDE SODIUM (LEVOTHYROXIDE SODIUM) [Concomitant]
  3. ETODOLAC [Concomitant]
  4. ALENDRONATE SODIUM [Concomitant]
  5. CALCIUM (CALCIUM) [Concomitant]
  6. SERTRALINE HCL [Concomitant]
  7. LORAZEPAM [Concomitant]

REACTIONS (3)
  - ABDOMINAL PAIN UPPER [None]
  - INTERVERTEBRAL DISC PROTRUSION [None]
  - PHARMACEUTICAL PRODUCT COMPLAINT [None]
